FAERS Safety Report 6169479-1 (Version None)
Quarter: 2009Q2

REPORT INFORMATION
  Report Type: 
  Country: None (occurrence: None)
  Receive Date: 20090424
  Receipt Date: 20090122
  Transmission Date: 20091009
  Serious: No
  Sender: FDA-Public Use
  Company Number: ALL1-2009-00173

PATIENT
  Age: 7 Year
  Sex: Female
  Weight: 21.3 kg

DRUGS (2)
  1. VYVANSE [Suspect]
     Indication: ATTENTION DEFICIT/HYPERACTIVITY DISORDER
     Dosage: 1X/DAY:QD, ORAL
     Route: 048
     Dates: start: 20081201, end: 20090103
  2. DAYTRANA [Suspect]
     Indication: ATTENTION DEFICIT/HYPERACTIVITY DISORDER
     Dosage: 10 MG, 1X/DAY:QD, TRANSDERMAL
     Route: 062
     Dates: start: 20090105

REACTIONS (3)
  - CRYING [None]
  - DEPRESSED MOOD [None]
  - PSYCHOMOTOR HYPERACTIVITY [None]
